FAERS Safety Report 9097880 (Version 2)
Quarter: 2013Q1

REPORT INFORMATION
  Report Type: Spontaneous
  Country: US (occurrence: US)
  Receive Date: 20130212
  Receipt Date: 20130226
  Transmission Date: 20140127
  Serious: Yes (Hospitalization)
  Sender: FDA-Public Use
  Company Number: US-BRISTOL-MYERS SQUIBB COMPANY-17369794

PATIENT
  Age: 70 Year
  Sex: Male
  Weight: 107 kg

DRUGS (9)
  1. METFORMIN HCL [Suspect]
     Indication: TYPE 2 DIABETES MELLITUS
     Dosage: 05-AUG-2010 TILL 19-APR-2012 ?RESUMED ON 01-MAY-2012?AGAIN DISCONTINUED
     Route: 048
     Dates: start: 20100805
  2. PRAVASTATIN SODIUM [Suspect]
     Route: 048
     Dates: start: 2006
  3. BENICAR [Concomitant]
     Route: 048
     Dates: start: 2006
  4. CIPRO [Concomitant]
     Route: 048
     Dates: start: 20120104
  5. FENOFIBRATE [Concomitant]
     Route: 048
     Dates: start: 2007
  6. FLEXERIL [Concomitant]
     Route: 048
     Dates: start: 201010
  7. FLOMAX [Concomitant]
     Route: 048
     Dates: start: 20110420
  8. OMEPRAZOLE [Concomitant]
     Route: 048
     Dates: start: 2006
  9. ZETIA [Concomitant]
     Route: 048
     Dates: start: 2003

REACTIONS (4)
  - Pancreatitis acute [Recovered/Resolved]
  - Diverticulum [Not Recovered/Not Resolved]
  - Pseudocyst [Not Recovered/Not Resolved]
  - Leukocytosis [Not Recovered/Not Resolved]
